FAERS Safety Report 16760068 (Version 1)
Quarter: 2019Q3

REPORT INFORMATION
  Report Type: Spontaneous
  Country: US (occurrence: US)
  Receive Date: 20190712
  Receipt Date: 20190712
  Transmission Date: 20191005
  Serious: Yes (Disabling)
  Sender: FDA-Public Use
  Company Number: None

PATIENT
  Age: 54 Year
  Sex: Female

DRUGS (1)
  1. SIMVASTATIN 40MG [Suspect]
     Active Substance: SIMVASTATIN
     Indication: BLOOD CHOLESTEROL INCREASED
     Route: 048
     Dates: start: 20110801, end: 20111201

REACTIONS (11)
  - Goitre [None]
  - Gait inability [None]
  - Acne [None]
  - Fibromyalgia [None]
  - Muscle spasms [None]
  - Diabetes mellitus [None]
  - Pharyngeal swelling [None]
  - Dementia [None]
  - Chromaturia [None]
  - Swelling face [None]
  - Carpal tunnel syndrome [None]

NARRATIVE: CASE EVENT DATE: 20111117
